FAERS Safety Report 6382047-1 (Version None)
Quarter: 2009Q3

REPORT INFORMATION
  Report Type: 
  Country: None (occurrence: None)
  Receive Date: 20090930
  Receipt Date: 20090916
  Transmission Date: 20100115
  Serious: No
  Sender: FDA-Public Use
  Company Number: PHHY2009BR40212

PATIENT
  Age: 59 Year
  Sex: Male

DRUGS (3)
  1. NILOTINIB [Suspect]
     Dosage: 2 CAPSULES
     Dates: start: 20090708
  2. DASATINIB [Concomitant]
     Dosage: UNK
     Dates: start: 20050101
  3. DASATINIB [Concomitant]
     Dosage: 140 MG/DAY

REACTIONS (2)
  - ACCIDENTAL EXPOSURE [None]
  - DRUG DISPENSING ERROR [None]
